FAERS Safety Report 4510553-0 (Version None)
Quarter: 2004Q4

REPORT INFORMATION
  Report Type: 
  Country: None (occurrence: None)
  Receive Date: 20041122
  Receipt Date: 20041109
  Transmission Date: 20050328
  Serious: Yes (Other)
  Sender: FDA-Public Use
  Company Number: 2004090172

PATIENT
  Age: 49 Year
  Sex: Male
  Weight: 102.0593 kg

DRUGS (4)
  1. BEXTRA [Suspect]
     Indication: ROTATOR CUFF SYNDROME
     Dosage: 10 MG (10 MG, 1 IN 1 D), ORAL
     Route: 048
     Dates: start: 20040801, end: 20041108
  2. CELEBREX [Suspect]
     Indication: ROTATOR CUFF SYNDROME
     Dosage: 200 MG (200 MG, 1 IN 1 D), ORAL
     Route: 048
     Dates: start: 20040101, end: 20040101
  3. VENLAFAXINE HYDROCHLORIDE (VENLAFAXINE HYDROCHORIDE) [Concomitant]
  4. GABAPENTIN [Concomitant]

REACTIONS (13)
  - ABNORMAL DREAMS [None]
  - ANOREXIA [None]
  - DERMATITIS EXFOLIATIVE [None]
  - DRUG INEFFECTIVE [None]
  - HYPERHIDROSIS [None]
  - INSOMNIA [None]
  - NIGHTMARE [None]
  - POST PROCEDURAL PAIN [None]
  - PYREXIA [None]
  - RASH ERYTHEMATOUS [None]
  - RASH MACULAR [None]
  - SKIN ODOUR ABNORMAL [None]
  - WEIGHT DECREASED [None]
